FAERS Safety Report 24987734 (Version 2)
Quarter: 2025Q1

REPORT INFORMATION
  Report Type: Spontaneous
  Country: US (occurrence: None)
  Receive Date: 20250219
  Receipt Date: 20250312
  Transmission Date: 20250408
  Serious: No
  Sender: INCYTE
  Company Number: US-EVENT-001542

PATIENT
  Age: 33 Year

DRUGS (3)
  1. PEMAZYRE [Suspect]
     Active Substance: PEMIGATINIB
     Indication: Malignant central nervous system neoplasm
     Dosage: 13.5 MILLIGRAM, QAM FOR 14 DAYS AND THEN 7 DAYS OFF WITH FOOD
     Route: 065
  2. PEMAZYRE [Suspect]
     Active Substance: PEMIGATINIB
     Route: 065
  3. ACETAMINOPHEN [Concomitant]
     Active Substance: ACETAMINOPHEN
     Indication: Product used for unknown indication
     Route: 065

REACTIONS (8)
  - Fatigue [Unknown]
  - Skin burning sensation [Unknown]
  - Skin lesion [Unknown]
  - Dry skin [Unknown]
  - Diarrhoea [Unknown]
  - Nail disorder [Unknown]
  - Dry eye [Unknown]
  - Off label use [Unknown]
